FAERS Safety Report 7436688-0 (Version None)
Quarter: 2011Q2

REPORT INFORMATION
  Report Type: 
  Country: None (occurrence: None)
  Receive Date: 20110418
  Receipt Date: 20110329
  Transmission Date: 20111010
  Serious: Yes (Hospitalization)
  Sender: FDA-Public Use
  Company Number: TPA2011A01587

PATIENT
  Age: 51 Year
  Sex: Male

DRUGS (6)
  1. PANTOPRAZOLE SODIUM [Concomitant]
  2. MICARDIS [Concomitant]
  3. COLCHICUM (COLCHICINE) [Concomitant]
  4. ULORIC [Suspect]
     Indication: HYPERURICAEMIA
     Dosage: 80 MG (80 MG,1 IN 1 D) ORAL
     Route: 048
     Dates: start: 20110201
  5. FOLTAREN DISPERS (DICLOFENAC) [Concomitant]
  6. IBUPROFEN [Concomitant]

REACTIONS (5)
  - MUSCLE SPASMS [None]
  - BLOOD PRESSURE INCREASED [None]
  - DYSPNOEA [None]
  - GOUT [None]
  - MOBILITY DECREASED [None]
